FAERS Safety Report 9139237 (Version 2)
Quarter: 2013Q3

REPORT INFORMATION
  Report Type: Spontaneous
  Country: US (occurrence: US)
  Receive Date: 20130305
  Receipt Date: 20130816
  Transmission Date: 20140515
  Serious: No
  Sender: FDA-Public Use
  Company Number: US-BAYER-2013-026680

PATIENT
  Age: 48 Year
  Sex: Female

DRUGS (1)
  1. MIRENA [Suspect]
     Indication: CONTRACEPTION
     Dosage: 20 MCG/24HR, CONT
     Route: 015
     Dates: start: 201212, end: 20130521

REACTIONS (7)
  - Sciatica [None]
  - Hypoaesthesia [None]
  - Back pain [None]
  - Abdominal pain lower [Recovered/Resolved]
  - Pain in extremity [None]
  - Menstruation delayed [None]
  - Hypomenorrhoea [None]
